FAERS Safety Report 6884109-9 (Version None)
Quarter: 2010Q3

REPORT INFORMATION
  Report Type: 
  Country: None (occurrence: None)
  Receive Date: 20100729
  Receipt Date: 20100722
  Transmission Date: 20110219
  Serious: Yes (Life-Threatening)
  Sender: FDA-Public Use
  Company Number: FR-B.I. PHARMACEUTICALS,INC./RIDGEFIELD-2010-FF-00600FF

PATIENT
  Sex: Male

DRUGS (7)
  1. MECIR LP 0.4 [Suspect]
     Dosage: 0.4 MG
     Route: 048
     Dates: start: 20100512, end: 20100627
  2. ENGERIX-B [Suspect]
     Indication: IMMUNISATION
     Dosage: 0.0333 DOSE FORM
     Route: 030
     Dates: start: 20100520, end: 20100617
  3. BISOPROLOL BIOGARAN [Suspect]
     Dosage: 10 MG
     Route: 048
     Dates: start: 20100324, end: 20100627
  4. CRESTOR [Concomitant]
  5. OROCAL [Concomitant]
  6. KARDEGIC [Concomitant]
  7. RESIKALI [Concomitant]

REACTIONS (1)
  - TOXIC EPIDERMAL NECROLYSIS [None]
